FAERS Safety Report 8764146 (Version 2)
Quarter: 2013Q2

REPORT INFORMATION
  Report Type: Report from Study
  Country: CA (occurrence: CA)
  Receive Date: 20120831
  Receipt Date: 20130528
  Transmission Date: 20140414
  Serious: Yes (Other)
  Sender: FDA-Public Use
  Company Number: CA-BRISTOL-MYERS SQUIBB COMPANY-16906281

PATIENT
  Age: 32 Year
  Sex: Female

DRUGS (6)
  1. ORENCIA [Suspect]
     Indication: RHEUMATOID ARTHRITIS
     Dosage: LAST INF: 23AUG12
     Route: 042
     Dates: start: 20110602
  2. PLAQUENIL [Concomitant]
  3. PREDNISONE [Concomitant]
  4. EFFEXOR [Concomitant]
  5. NAPROXEN [Concomitant]
  6. MARVELON [Concomitant]

REACTIONS (2)
  - Abortion spontaneous [Unknown]
  - Pregnancy [Unknown]
